FAERS Safety Report 8057447-4 (Version None)
Quarter: 2012Q1

REPORT INFORMATION
  Report Type: 
  Country: None (occurrence: None)
  Receive Date: 20120119
  Receipt Date: 20120118
  Transmission Date: 20120608
  Serious: Yes (Hospitalization, Other)
  Sender: FDA-Public Use
  Company Number: US-ROCHE-784607

PATIENT
  Sex: Female
  Weight: 44.492 kg

DRUGS (7)
  1. ACCUTANE [Suspect]
     Indication: PRODUCT USED FOR UNKNOWN INDICATION
     Route: 048
     Dates: start: 19900701, end: 19901101
  2. MINOCIN [Concomitant]
  3. ACCUTANE [Suspect]
     Route: 048
  4. ACCUTANE [Suspect]
     Route: 048
     Dates: start: 20010201, end: 20010401
  5. ORAL CONTRACEPTIVES NOS [Concomitant]
  6. ERYTHROMYCIN [Concomitant]
  7. TETRACYCLINE [Concomitant]

REACTIONS (6)
  - INFLAMMATORY BOWEL DISEASE [None]
  - DRY SKIN [None]
  - LIP DRY [None]
  - INTESTINAL OBSTRUCTION [None]
  - STRESS [None]
  - CROHN'S DISEASE [None]
